FAERS Safety Report 11680985 (Version 2)
Quarter: 2015Q4

REPORT INFORMATION
  Report Type: Spontaneous
  Country: US (occurrence: US)
  Receive Date: 20151027
  Receipt Date: 20151110
  Transmission Date: 20160304
  Serious: No
  Sender: FDA-Public Use
  Company Number: US-ELI_LILLY_AND_COMPANY-US201004004576

PATIENT
  Age: 64 Year
  Sex: Female
  Weight: 45.3 kg

DRUGS (4)
  1. FORTEO [Suspect]
     Active Substance: TERIPARATIDE
     Dosage: 20 UG, QD
     Dates: end: 20120121
  2. VITAMINS [Concomitant]
     Active Substance: VITAMINS
  3. FORTEO [Suspect]
     Active Substance: TERIPARATIDE
     Dosage: 20 UG, QD
  4. FORTEO [Suspect]
     Active Substance: TERIPARATIDE
     Indication: OSTEOPOROSIS
     Dosage: 20 UG, QD
     Dates: start: 201002

REACTIONS (17)
  - Musculoskeletal discomfort [Unknown]
  - Pain [Recovering/Resolving]
  - Thyroid disorder [Not Recovered/Not Resolved]
  - Peripheral swelling [Unknown]
  - Arthralgia [Not Recovered/Not Resolved]
  - Asthenia [Unknown]
  - Myalgia [Unknown]
  - Feeling abnormal [Unknown]
  - Gait disturbance [Unknown]
  - Blood calcium increased [Unknown]
  - Contusion [Unknown]
  - Depressed mood [Unknown]
  - Stress fracture [Unknown]
  - Headache [Not Recovered/Not Resolved]
  - Arthritis [Unknown]
  - Foot fracture [Unknown]
  - Musculoskeletal stiffness [Unknown]

NARRATIVE: CASE EVENT DATE: 201106
